FAERS Safety Report 5387104-4 (Version None)
Quarter: 2007Q3

REPORT INFORMATION
  Report Type: 
  Country: None (occurrence: None)
  Receive Date: 20070711
  Receipt Date: 20070628
  Transmission Date: 20080115
  Serious: Yes (Hospitalization)
  Sender: FDA-Public Use
  Company Number: 2007BI012279

PATIENT
  Age: 45 Year
  Sex: Female

DRUGS (1)
  1. AVONEX [Suspect]
     Indication: MULTIPLE SCLEROSIS
     Dosage: 30 UG;QW; IM
     Route: 030
     Dates: start: 19980301

REACTIONS (6)
  - ARTHRITIS [None]
  - BLOOD POTASSIUM DECREASED [None]
  - DIARRHOEA [None]
  - HEMIPARESIS [None]
  - NERVOUS SYSTEM DISORDER [None]
  - STOMACH DISCOMFORT [None]
